FAERS Safety Report 22270786 (Version 1)
Quarter: 2023Q2

REPORT INFORMATION
  Report Type: Spontaneous
  Country: US (occurrence: None)
  Receive Date: 20230428
  Receipt Date: 20230428
  Transmission Date: 20230721
  Serious: Yes (Hospitalization)
  Sender: FDA-Public Use
  Company Number: None

PATIENT
  Sex: Male

DRUGS (12)
  1. LENALIDOMIDE [Suspect]
     Active Substance: LENALIDOMIDE
     Indication: Plasma cell myeloma
     Dosage: 15 MG ORAL??TAKE 1 CAPSULE BY MOUTH DAILY ON DAYS 1-21 OF EACHE 28 DAY CYCLE. TAKE WHOLE WITH WATER
     Route: 048
     Dates: start: 20230405
  2. LENALIDOMIDE [Suspect]
     Active Substance: LENALIDOMIDE
     Dosage: FREQUENCY : DAILY;?
     Route: 048
  3. ACETAMINPHE [Concomitant]
  4. ACYCLOVIR [Concomitant]
  5. ALBUTEROL AER HFA [Concomitant]
  6. ASPIRIN CHW [Concomitant]
  7. CETIRIZINE [Concomitant]
     Active Substance: CETIRIZINE HYDROCHLORIDE
  8. DEXAMETHASON [Concomitant]
  9. FAMOTIDINE [Concomitant]
  10. OXYCODONE [Concomitant]
  11. REVLIMID [Concomitant]
     Active Substance: LENALIDOMIDE
  12. TRAMADOL HCL [Concomitant]

REACTIONS (1)
  - Therapy cessation [None]
